FAERS Safety Report 5897147-X (Version None)
Quarter: 2008Q3

REPORT INFORMATION
  Report Type: 
  Country: None (occurrence: None)
  Receive Date: 20080924
  Receipt Date: 20080425
  Transmission Date: 20090109
  Serious: Yes (Other)
  Sender: FDA-Public Use
  Company Number: US-ASTRAZENECA-2008UW08538

PATIENT
  Age: 29 Year
  Sex: Male

DRUGS (7)
  1. SEROQUEL [Suspect]
     Indication: HALLUCINATION
     Route: 048
  2. SEROQUEL [Suspect]
     Route: 048
  3. SEROQUEL [Suspect]
     Route: 048
  4. WELLBUTRIN [Concomitant]
  5. ZYPREXA [Concomitant]
  6. RISPERDAL [Concomitant]
  7. TEMAZEPAM [Concomitant]

REACTIONS (5)
  - ANGINA PECTORIS [None]
  - DEPRESSION [None]
  - INTENTIONAL OVERDOSE [None]
  - PARANOIA [None]
  - TARDIVE DYSKINESIA [None]
